FAERS Safety Report 23658542 (Version 3)
Quarter: 2024Q2

REPORT INFORMATION
  Report Type: Spontaneous
  Country: US (occurrence: US)
  Receive Date: 20240321
  Receipt Date: 20240410
  Transmission Date: 20240715
  Serious: Yes (Hospitalization, Other)
  Sender: FDA-Public Use
  Company Number: US-BRISTOL-MYERS SQUIBB COMPANY-2024-045444

PATIENT
  Age: 60 Year
  Sex: Male
  Weight: 68.49 kg

DRUGS (2)
  1. REVLIMID [Suspect]
     Active Substance: LENALIDOMIDE
     Indication: Plasma cell myeloma
     Dosage: FREQUENCY:14
     Route: 048
     Dates: start: 20240223
  2. REVLIMID [Suspect]
     Active Substance: LENALIDOMIDE
     Dosage: QD FOR 14 DAYS THEN 7 DAYS OF
     Route: 048
     Dates: start: 20240227

REACTIONS (4)
  - Constipation [Unknown]
  - Off label use [Unknown]
  - Back disorder [Unknown]
  - Dehydration [Unknown]
